FAERS Safety Report 10682636 (Version 1)
Quarter: 2014Q4

REPORT INFORMATION
  Report Type: Spontaneous
  Country: US (occurrence: None)
  Receive Date: 20141224
  Receipt Date: 20141224
  Transmission Date: 20150529
  Serious: Yes (Hospitalization)
  Sender: FDA-Public Use
  Company Number: US-ALKEM-000790

PATIENT
  Age: 36 Year
  Sex: Male

DRUGS (4)
  1. RALTEGRAVIR [Concomitant]
     Active Substance: RALTEGRAVIR
  2. TENOFOVIR [Concomitant]
     Active Substance: TENOFOVIR
  3. LAMOTRIGINE. [Suspect]
     Active Substance: LAMOTRIGINE
  4. EMTRICITABINE [Concomitant]
     Active Substance: EMTRICITABINE

REACTIONS (9)
  - Suicide attempt [None]
  - Muscle spasticity [None]
  - Myopathy [None]
  - Blood pressure increased [None]
  - Status epilepticus [None]
  - Quadriplegia [None]
  - Cardiotoxicity [None]
  - Intentional overdose [None]
  - Respiratory rate increased [None]
